FAERS Safety Report 24533856 (Version 1)
Quarter: 2024Q4

REPORT INFORMATION
  Report Type: Spontaneous
  Country: DE (occurrence: DE)
  Receive Date: 20241022
  Receipt Date: 20241022
  Transmission Date: 20250114
  Serious: Yes (Life-Threatening, Hospitalization, Other)
  Sender: SANDOZ
  Company Number: DE-NOVPHSZ-PHHY2019DE175784

PATIENT
  Age: 16 Year
  Sex: Female
  Weight: 66 kg

DRUGS (2)
  1. VALPROATE SODIUM [Suspect]
     Active Substance: VALPROATE SODIUM
     Indication: Epilepsy
     Dosage: 600 MG, BID
     Route: 048
     Dates: start: 20180901
  2. VALPROATE SODIUM [Suspect]
     Active Substance: VALPROATE SODIUM
     Dosage: 600 MG, BID
     Route: 048
     Dates: start: 20190320

REACTIONS (6)
  - Anticonvulsant drug level decreased [Recovered/Resolved]
  - Petit mal epilepsy [Recovered/Resolved]
  - Arrhythmia [Unknown]
  - Generalised tonic-clonic seizure [Unknown]
  - Fall [Unknown]
  - Therapeutic response decreased [Unknown]

NARRATIVE: CASE EVENT DATE: 20180901
